FAERS Safety Report 22961634 (Version 3)
Quarter: 2023Q4

REPORT INFORMATION
  Report Type: Spontaneous
  Country: GB (occurrence: GB)
  Receive Date: 20230920
  Receipt Date: 20231018
  Transmission Date: 20240110
  Serious: Yes (Hospitalization)
  Sender: FDA-Public Use
  Company Number: None

PATIENT
  Age: 75 Year
  Sex: Male
  Weight: 85 kg

DRUGS (2)
  1. CABAZITAXEL [Suspect]
     Active Substance: CABAZITAXEL
     Indication: Prostate cancer
     Dosage: 40 MG, ADMINISTERED VIA A DRIP INTO A PATIENT^S BLOODSTREAM, EVERY 21 DAYS
     Route: 042
     Dates: start: 20230322, end: 20230503
  2. CARBOPLATIN [Concomitant]
     Active Substance: CARBOPLATIN
     Indication: Prostate cancer
     Dosage: 440 MG, EVERY 21 DAYS
     Route: 042
     Dates: start: 20230322, end: 20230503

REACTIONS (4)
  - Clostridium difficile infection [Recovered/Resolved]
  - White blood cell count decreased [Recovered/Resolved]
  - Off label use [Unknown]
  - Overdose [Unknown]

NARRATIVE: CASE EVENT DATE: 20230412
